FAERS Safety Report 6955771-7 (Version None)
Quarter: 2010Q3

REPORT INFORMATION
  Report Type: 
  Country: None (occurrence: None)
  Receive Date: 20100830
  Receipt Date: 20100824
  Transmission Date: 20110219
  Serious: Yes (Death, Hospitalization)
  Sender: FDA-Public Use
  Company Number: US-ROCHE-719857

PATIENT
  Sex: Female
  Weight: 60.8 kg

DRUGS (10)
  1. ACTEMRA [Suspect]
     Dosage: DOSE LEVEL: 4 MG/KG; STRENGTH 200 MG; 80 MG
     Route: 042
     Dates: start: 20100722
  2. COUMADIN [Suspect]
     Indication: PRODUCT USED FOR UNKNOWN INDICATION
     Route: 065
  3. JANUVIA [Concomitant]
  4. AMARYL [Concomitant]
  5. ZOCOR [Concomitant]
  6. LASIX [Concomitant]
  7. COREG [Concomitant]
  8. POTASSIUM [Concomitant]
  9. CALCIUM [Concomitant]
  10. ULTRACET [Concomitant]

REACTIONS (1)
  - HAEMORRHAGE [None]
